FAERS Safety Report 5168872-3 (Version None)
Quarter: 2006Q4

REPORT INFORMATION
  Report Type: 
  Country: None (occurrence: None)
  Receive Date: 20061206
  Receipt Date: 20061206
  Transmission Date: 20070319
  Serious: Yes (Hospitalization)
  Sender: FDA-Public Use
  Company Number: None

PATIENT
  Age: 74 Year
  Sex: Female
  Weight: 89.8122 kg

DRUGS (1)
  1. TRUSOPT [Suspect]
     Indication: GLAUCOMA
     Dosage: 1 DROP   3 TIMES DAILY  OPHTHALMIC
     Route: 047
     Dates: start: 20051101, end: 20061106

REACTIONS (2)
  - CHEST DISCOMFORT [None]
  - POST PROCEDURAL HAEMATOMA [None]
